FAERS Safety Report 6361641-8 (Version None)
Quarter: 2009Q3

REPORT INFORMATION
  Report Type: 
  Country: None (occurrence: None)
  Receive Date: 20090918
  Receipt Date: 20090907
  Transmission Date: 20100115
  Serious: Yes (Other)
  Sender: FDA-Public Use
  Company Number: DE-PFIZER INC-2009264796

PATIENT
  Age: 15 Year

DRUGS (1)
  1. SOMATROPIN [Suspect]
     Indication: PRADER-WILLI SYNDROME
     Dosage: 1.7 MG, 1X/DAY
     Route: 058
     Dates: start: 20010124, end: 20081202

REACTIONS (1)
  - EJECTION FRACTION DECREASED [None]
